FAERS Safety Report 23135967 (Version 4)
Quarter: 2025Q1

REPORT INFORMATION
  Report Type: Spontaneous
  Country: JP (occurrence: JP)
  Receive Date: 20231102
  Receipt Date: 20250121
  Transmission Date: 20250408
  Serious: Yes (Other)
  Sender: ALEXION PHARMACEUTICALS
  Company Number: 2023A244648

PATIENT
  Age: 61 Year

DRUGS (4)
  1. LYNPARZA [Suspect]
     Active Substance: OLAPARIB
     Indication: Pancreatic carcinoma
     Dosage: 150 MILLIGRAM, BID
  2. LYNPARZA [Suspect]
     Active Substance: OLAPARIB
     Dosage: 300 MILLIGRAM, BID
  3. LYNPARZA [Suspect]
     Active Substance: OLAPARIB
     Dosage: 150 MILLIGRAM, BID
  4. LYNPARZA [Suspect]
     Active Substance: OLAPARIB

REACTIONS (2)
  - Cholangitis [Unknown]
  - Pancreatic carcinoma [Unknown]
